FAERS Safety Report 7001769-2 (Version None)
Quarter: 2010Q3

REPORT INFORMATION
  Report Type: 
  Country: None (occurrence: None)
  Receive Date: 20100920
  Receipt Date: 20070918
  Transmission Date: 20110219
  Serious: Yes (Other)
  Sender: FDA-Public Use
  Company Number: US-ASTRAZENECA-2006UW11334

PATIENT
  Age: 754 Month
  Sex: Female
  Weight: 73 kg

DRUGS (30)
  1. SEROQUEL [Suspect]
     Indication: ANXIETY
     Dosage: 25 MG-400 MG DAILY
     Route: 048
     Dates: start: 20001107
  2. SEROQUEL [Suspect]
     Indication: DEPRESSION
     Dosage: 25 MG-400 MG DAILY
     Route: 048
     Dates: start: 20001107
  3. SEROQUEL [Suspect]
     Indication: BIPOLAR DISORDER
     Dosage: 25 MG-400 MG DAILY
     Route: 048
     Dates: start: 20001107
  4. SEROQUEL [Suspect]
     Indication: NIGHTMARE
     Dosage: 25 MG-400 MG DAILY
     Route: 048
     Dates: start: 20001107
  5. SEROQUEL [Suspect]
     Dosage: 200 MG AND 50 MG
     Route: 048
     Dates: start: 20010601, end: 20050301
  6. SEROQUEL [Suspect]
     Dosage: 200 MG AND 50 MG
     Route: 048
     Dates: start: 20010601, end: 20050301
  7. SEROQUEL [Suspect]
     Dosage: 200 MG AND 50 MG
     Route: 048
     Dates: start: 20010601, end: 20050301
  8. SEROQUEL [Suspect]
     Dosage: 200 MG AND 50 MG
     Route: 048
     Dates: start: 20010601, end: 20050301
  9. CLOZARIL [Concomitant]
  10. PAXIL [Concomitant]
     Dates: start: 20001107
  11. TRAZODONE HCL [Concomitant]
     Dates: start: 20001107
  12. PROTONIX [Concomitant]
     Dates: start: 20001107
  13. PREMPRO [Concomitant]
     Dosage: STRENGTH: 0.625/2.5 MG
     Dates: start: 20001107
  14. CLARITIN [Concomitant]
     Dates: start: 20001107
  15. ZOCOR [Concomitant]
     Dates: start: 20001107
  16. LEVOXYL [Concomitant]
     Dates: start: 20001107
  17. HYDROCHLOROT [Concomitant]
     Dates: start: 20001107
  18. XOPENEX [Concomitant]
     Dates: start: 20060526
  19. DEXAMETHASONE [Concomitant]
     Dates: start: 20060526
  20. ATROVENT [Concomitant]
     Dosage: THREE TIMES A DAY
     Route: 055
     Dates: start: 20060526
  21. ATIVAN [Concomitant]
     Dosage: 3 MG-4 MG DAILY
     Dates: start: 20040330
  22. EFFEXOR XR [Concomitant]
     Dates: start: 20040330
  23. ACTOS [Concomitant]
     Dates: start: 20051201
  24. AMBIEN [Concomitant]
     Dosage: DOSE- 10 MG AT NIGHT AS REQUIRED
     Dates: start: 20040330
  25. COMBIVENT [Concomitant]
     Dosage: DOSE- 2 PUFFS EVERY 6 HOURS AS REQUIRED
     Dates: start: 20040330
  26. CELEBREX [Concomitant]
     Dates: start: 20040330
  27. THEO-DUR [Concomitant]
     Dosage: 300 MG-450 MG DAILY
     Dates: start: 20040330
  28. DEPAKOTE ER [Concomitant]
     Dates: start: 20040330
  29. ACIPHEX [Concomitant]
     Dates: start: 20060526
  30. LOVASTATIN [Concomitant]
     Dates: start: 20060526

REACTIONS (3)
  - DIABETES MELLITUS [None]
  - KETOACIDOSIS [None]
  - TYPE 2 DIABETES MELLITUS [None]
